FAERS Safety Report 14879191 (Version 4)
Quarter: 2018Q4

REPORT INFORMATION
  Report Type: Report from Study
  Country: CN (occurrence: CN)
  Receive Date: 20180511
  Receipt Date: 20181016
  Transmission Date: 20190204
  Serious: Yes (Hospitalization, Other)
  Sender: FDA-Public Use
  Company Number: CN-ROCHE-2121678

PATIENT
  Age: 78 Year
  Sex: Male
  Weight: 60 kg

DRUGS (7)
  1. ERLOTINIB [Suspect]
     Active Substance: ERLOTINIB
     Route: 048
     Dates: start: 20171113, end: 20171204
  2. ERLOTINIB [Suspect]
     Active Substance: ERLOTINIB
     Route: 048
     Dates: end: 20180428
  3. BEVACIZUMAB. [Suspect]
     Active Substance: BEVACIZUMAB
     Indication: NON-SMALL CELL LUNG CANCER
     Dosage: DATE OF MOST RECENT DOSE PRIOR TO EVENT ONSET (HIGH BLOOD PRESSURE): 23/OCT/2017
     Route: 041
     Dates: start: 20170415, end: 20171113
  4. ERLOTINIB [Suspect]
     Active Substance: ERLOTINIB
     Indication: NON-SMALL CELL LUNG CANCER
     Dosage: DATE OF MOST RECENT DOSE PRIOR TO EVENT ONSET (HIGH BLOOD PRESSURE): 13/NOV/2017
     Route: 048
     Dates: start: 20170415
  5. ERLOTINIB [Suspect]
     Active Substance: ERLOTINIB
     Dosage: DATE OF MOST RECENT DOSE PRIOR TO EVENT ONSET (LOSS OF APPETITE): 02/MAY/2018
     Route: 048
     Dates: start: 20180429, end: 20180502
  6. BEVACIZUMAB. [Suspect]
     Active Substance: BEVACIZUMAB
     Route: 041
     Dates: start: 20171204
  7. ERLOTINIB [Suspect]
     Active Substance: ERLOTINIB
     Route: 048
     Dates: start: 20180516

REACTIONS (2)
  - Hypertension [Recovered/Resolved]
  - Decreased appetite [Not Recovered/Not Resolved]

NARRATIVE: CASE EVENT DATE: 20170509
